FAERS Safety Report 18682993 (Version 1)
Quarter: 2020Q4

REPORT INFORMATION
  Report Type: Spontaneous
  Country: US (occurrence: US)
  Receive Date: 20201230
  Receipt Date: 20201230
  Transmission Date: 20210114
  Serious: Yes (Death, Hospitalization, Other)
  Sender: FDA-Public Use
  Company Number: US-BRISTOL-MYERS SQUIBB COMPANY-BMS-2020-111801

PATIENT

DRUGS (1)
  1. IPILIMUMAB [Suspect]
     Active Substance: IPILIMUMAB
     Indication: CHRONIC LYMPHOCYTIC LEUKAEMIA
     Dosage: 3 MILLIGRAM/KILOGRAM
     Route: 065

REACTIONS (5)
  - Acute hepatic failure [Fatal]
  - Fatigue [Unknown]
  - Hepatotoxicity [Unknown]
  - Vomiting [Unknown]
  - Nausea [Unknown]
